FAERS Safety Report 6348659-6 (Version None)
Quarter: 2009Q3

REPORT INFORMATION
  Report Type: 
  Country: None (occurrence: None)
  Receive Date: 20090908
  Receipt Date: 20090828
  Transmission Date: 20100115
  Serious: Yes (Hospitalization, Other)
  Sender: FDA-Public Use
  Company Number: 230272J09USA

PATIENT
  Age: 54 Year
  Sex: Female
  Weight: 61 kg

DRUGS (9)
  1. REBIF [Suspect]
     Indication: MULTIPLE SCLEROSIS
     Dosage: 44 MCG, 3 IN 1 WEEKS, SUBCUTANEOUS
     Route: 058
     Dates: start: 20090720
  2. ZOLOFT [Concomitant]
  3. OBETROL [Concomitant]
  4. KLONOPIN (CLONAZEPIN) [Concomitant]
  5. NIASPAN [Concomitant]
  6. ZOCOR [Concomitant]
  7. LYRICA [Concomitant]
  8. TYLENOL NUMBER 3 (PANADEINE CO) [Concomitant]
  9. LIDODERM PATCH (LIDOCAINE /00033401/) [Concomitant]

REACTIONS (7)
  - CARDIAC ENZYMES INCREASED [None]
  - CORONARY ARTERY OCCLUSION [None]
  - DEHYDRATION [None]
  - ELECTROCARDIOGRAM ABNORMAL [None]
  - HEAD INJURY [None]
  - LOSS OF CONSCIOUSNESS [None]
  - PHOTOPSIA [None]
